FAERS Safety Report 19242398 (Version 1)
Quarter: 2021Q2

REPORT INFORMATION
  Report Type: Spontaneous
  Country: US (occurrence: US)
  Receive Date: 20210511
  Receipt Date: 20210511
  Transmission Date: 20210717
  Serious: Yes (Other)
  Sender: FDA-Public Use
  Company Number: NVSC2021US097365

PATIENT
  Age: 77 Year
  Sex: Male
  Weight: 66 kg

DRUGS (1)
  1. KYMRIAH [Suspect]
     Active Substance: TISAGENLECLEUCEL
     Indication: DIFFUSE LARGE B-CELL LYMPHOMA
     Dosage: UNK, ONCE/SINGLE
     Route: 041
     Dates: start: 20210111

REACTIONS (19)
  - Fatigue [Unknown]
  - Hypoalbuminaemia [Unknown]
  - Confusional state [Unknown]
  - Aphasia [Unknown]
  - Tachypnoea [Unknown]
  - Immune effector cell-associated neurotoxicity syndrome [Unknown]
  - Somnolence [Unknown]
  - Acute kidney injury [Unknown]
  - Cytokine release syndrome [Unknown]
  - Headache [Unknown]
  - Hypotension [Unknown]
  - Sleep disorder [Unknown]
  - Pyrexia [Unknown]
  - Chills [Unknown]
  - Neurotoxicity [Unknown]
  - Perseveration [Unknown]
  - Hypoxia [Unknown]
  - Tachycardia [Unknown]
  - Disorientation [Unknown]

NARRATIVE: CASE EVENT DATE: 20210112
